FAERS Safety Report 12568507 (Version 1)
Quarter: 2016Q3

REPORT INFORMATION
  Report Type: Report from Study
  Country: CN (occurrence: CN)
  Receive Date: 20160719
  Receipt Date: 20160719
  Transmission Date: 20161109
  Serious: Yes (Death, Other)
  Sender: FDA-Public Use
  Company Number: CN-ROCHE-1669960

PATIENT
  Sex: Female
  Weight: 65 kg

DRUGS (1)
  1. AVASTIN [Suspect]
     Active Substance: BEVACIZUMAB
     Indication: NON-SMALL CELL LUNG CANCER
     Route: 041
     Dates: start: 20150811, end: 20160119

REACTIONS (3)
  - Pericardial effusion [Unknown]
  - Drug resistance [Unknown]
  - Lung neoplasm malignant [Fatal]
